FAERS Safety Report 6109765-4 (Version None)
Quarter: 2009Q1

REPORT INFORMATION
  Report Type: 
  Country: None (occurrence: None)
  Receive Date: 20090310
  Receipt Date: 20080418
  Transmission Date: 20090719
  Serious: No
  Sender: FDA-Public Use
  Company Number: A0723535A

PATIENT
  Age: 28 Year
  Sex: Female

DRUGS (1)
  1. NICORETTE (MINT) [Suspect]
     Dates: start: 20080414, end: 20080416

REACTIONS (6)
  - COUGH [None]
  - GINGIVAL ULCERATION [None]
  - MOUTH ULCERATION [None]
  - ORAL DISCOMFORT [None]
  - OROPHARYNGEAL PAIN [None]
  - SENSATION OF FOREIGN BODY [None]
